FAERS Safety Report 7510490-3 (Version None)
Quarter: 2011Q2

REPORT INFORMATION
  Report Type: 
  Country: None (occurrence: None)
  Receive Date: 20110529
  Receipt Date: 20110526
  Transmission Date: 20111010
  Serious: Yes (Hospitalization)
  Sender: FDA-Public Use
  Company Number: JP-BRISTOL-MYERS SQUIBB COMPANY-15781032

PATIENT
  Age: 65 Year
  Sex: Male
  Weight: 54 kg

DRUGS (14)
  1. MORPHINE [Concomitant]
     Indication: PAIN
     Route: 058
     Dates: start: 20110103, end: 20110111
  2. CISPLATIN [Suspect]
     Indication: HEAD AND NECK CANCER
     Route: 042
     Dates: start: 20100902, end: 20101001
  3. CEFAZOLIN [Concomitant]
     Indication: ANTIBIOTIC THERAPY
     Route: 042
     Dates: start: 20101227, end: 20110107
  4. CARBOPLATIN [Suspect]
     Indication: HEAD AND NECK CANCER
     Dosage: 1 DF: 5 AUC
     Route: 042
     Dates: start: 20101112, end: 20101202
  5. XYLOCAINE [Concomitant]
     Indication: OROPHARYNGEAL PAIN
     Dates: start: 20101221
  6. HIRUDOID [Concomitant]
     Indication: SKIN DISORDER
     Dosage: ROA : PERCUTANEOUSLY
     Dates: start: 20100908
  7. BISOLVON [Concomitant]
     Indication: PRODUCTIVE COUGH
     Route: 042
     Dates: start: 20101227, end: 20110107
  8. CLINDAMYCIN [Concomitant]
     Indication: ANTIBIOTIC THERAPY
     Route: 042
     Dates: start: 20101227, end: 20110109
  9. FLUOROURACIL [Suspect]
     Indication: HEAD AND NECK CANCER
     Route: 042
     Dates: start: 20100902, end: 20101206
  10. FLURBIPROFEN [Concomitant]
     Indication: PAIN
     Dosage: 1 DF: 0.5 A
     Route: 042
     Dates: start: 20110102, end: 20110107
  11. CETUXIMAB [Suspect]
     Indication: HEAD AND NECK CANCER
     Dosage: 02SEP2010-UNK 250 MG/M2
     Route: 042
     Dates: start: 20100902, end: 20101117
  12. MAGNESIUM SULFATE [Concomitant]
     Indication: BOWEL MOVEMENT IRREGULARITY
     Dosage: 1 DF: 1-2 T
     Dates: start: 20101205
  13. AZUNOL [Concomitant]
     Indication: OROPHARYNGEAL PAIN
     Dates: start: 20101221
  14. SODIUM CHLORIDE [Concomitant]
     Indication: PAIN
     Dosage: 1 DF: 0.5 A
     Route: 042
     Dates: start: 20110102, end: 20110107

REACTIONS (1)
  - DYSPHAGIA [None]
